FAERS Safety Report 5366986-6 (Version None)
Quarter: 2007Q2

REPORT INFORMATION
  Report Type: 
  Country: None (occurrence: None)
  Receive Date: 20070622
  Receipt Date: 20070615
  Transmission Date: 20071010
  Serious: Yes (Other)
  Sender: FDA-Public Use
  Company Number: US-BRACCO-BDI-009558

PATIENT
  Age: 71 Year
  Sex: Male

DRUGS (6)
  1. PROHANCE [Suspect]
     Dosage: ADMINISTERED 0.32 MILLIMOLES/KILOGRAM
     Route: 013
     Dates: start: 20020624, end: 20020624
  2. OMNISCAN [Suspect]
     Dosage: ADMINISTERED 0.1 MILLIMOLES/KILOGRAM
     Route: 042
     Dates: start: 20020620, end: 20020620
  3. OMNISCAN [Suspect]
     Indication: RENAL SCAN
     Route: 042
     Dates: start: 20030225, end: 20030225
  4. OMNISCAN [Suspect]
     Route: 042
     Dates: start: 20060203, end: 20060203
  5. OMNISCAN [Suspect]
     Route: 013
     Dates: start: 20060207, end: 20060207
  6. NONE REPORTED [Concomitant]

REACTIONS (2)
  - CONTRAST MEDIA REACTION [None]
  - NEPHROGENIC FIBROSING DERMOPATHY [None]
